FAERS Safety Report 19137721 (Version 1)
Quarter: 2021Q2

REPORT INFORMATION
  Report Type: Other
  Country: CH (occurrence: CH)
  Receive Date: 20210414
  Receipt Date: 20210414
  Transmission Date: 20210717
  Serious: Yes (Hospitalization, Other)
  Sender: FDA-Public Use
  Company Number: CH-ALSI-2021000103

PATIENT
  Age: 27 Year
  Sex: Male

DRUGS (1)
  1. NITROUS OXIDE. [Suspect]
     Active Substance: NITROUS OXIDE
     Indication: DRUG ABUSE
     Route: 055

REACTIONS (4)
  - Coronary artery thrombosis [Recovered/Resolved]
  - Toxicity to various agents [Recovered/Resolved]
  - Acute myocardial infarction [Recovered/Resolved]
  - Drug abuse [Recovered/Resolved]
